FAERS Safety Report 22613951 (Version 1)
Quarter: 2023Q2

REPORT INFORMATION
  Report Type: Spontaneous
  Country: US (occurrence: US)
  Receive Date: 20230619
  Receipt Date: 20230619
  Transmission Date: 20230721
  Serious: Yes (Other)
  Sender: FDA-Public Use
  Company Number: US-SA-SAC20230614001007

PATIENT
  Sex: Male

DRUGS (1)
  1. DUPIXENT [Suspect]
     Active Substance: DUPILUMAB
     Dosage: 300 MG; FREQUENCY:OTHER
     Route: 058
     Dates: end: 202305

REACTIONS (3)
  - Thrombosis [Recovering/Resolving]
  - Injection site muscle atrophy [Unknown]
  - Injection site swelling [Unknown]
